FAERS Safety Report 12994517 (Version 1)
Quarter: 2016Q4

REPORT INFORMATION
  Report Type: Report from Study
  Country: IN (occurrence: IN)
  Receive Date: 20161202
  Receipt Date: 20161202
  Transmission Date: 20170207
  Serious: Yes (Death, Other)
  Sender: FDA-Public Use
  Company Number: PHHY2016IN016244

PATIENT
  Age: 55 Year
  Sex: Male

DRUGS (1)
  1. GLIVEC [Suspect]
     Active Substance: IMATINIB MESYLATE
     Indication: DERMATOFIBROSARCOMA PROTUBERANS
     Dosage: 800 MG, UNK
     Route: 065

REACTIONS (3)
  - Metastases to lung [Unknown]
  - Recurrent cancer [Unknown]
  - Death [Fatal]

NARRATIVE: CASE EVENT DATE: 20161002
